FAERS Safety Report 8163278-7 (Version None)
Quarter: 2012Q1

REPORT INFORMATION
  Report Type: 
  Country: None (occurrence: None)
  Receive Date: 20120224
  Receipt Date: 20111007
  Transmission Date: 20120608
  Serious: No
  Sender: FDA-Public Use
  Company Number: US-PFIZER INC-K201101192

PATIENT
  Sex: Female
  Weight: 65.76 kg

DRUGS (5)
  1. SIMVASTATIN [Concomitant]
     Dosage: UNK
  2. CELEBREX [Concomitant]
     Dosage: UNK
  3. FLECTOR [Suspect]
     Dosage: UNK PATCH, UNK
     Route: 061
     Dates: start: 20110101
  4. NEXIUM [Concomitant]
     Dosage: UNK
  5. DILTIAZEM [Concomitant]
     Dosage: UNK

REACTIONS (1)
  - INFLUENZA [None]
